FAERS Safety Report 5357877-5 (Version None)
Quarter: 2007Q2

REPORT INFORMATION
  Report Type: 
  Country: None (occurrence: None)
  Receive Date: 20070530
  Receipt Date: 20070214
  Transmission Date: 20071010
  Serious: Yes (Other)
  Sender: FDA-Public Use
  Company Number: US200701001909

PATIENT
  Age: 43 Year
  Sex: Female

DRUGS (7)
  1. ZYPREXA [Suspect]
     Indication: THOUGHT INSERTION
     Dosage: 5 MG, DAILY (1/D), ORAL
     Route: 048
     Dates: start: 19990101, end: 20061228
  2. LUVOX [Concomitant]
  3. SYNTHROID [Concomitant]
  4. PREVACID [Concomitant]
  5. YASMIN /SWE/DROSPIRENONE, ETHYNYLESTRADIOL) [Concomitant]
  6. CLONAZEPAM [Concomitant]
  7. ABILIFY [Concomitant]

REACTIONS (2)
  - BLOOD GLUCOSE INCREASED [None]
  - WEIGHT INCREASED [None]
